FAERS Safety Report 6355655-1 (Version None)
Quarter: 2009Q3

REPORT INFORMATION
  Report Type: 
  Country: None (occurrence: None)
  Receive Date: 20090914
  Receipt Date: 20090904
  Transmission Date: 20100115
  Serious: Yes (Other)
  Sender: FDA-Public Use
  Company Number: CA-ABBOTT-09P-028-0569132-00

PATIENT
  Sex: Female

DRUGS (2)
  1. HUMIRA [Suspect]
     Indication: RHEUMATOID ARTHRITIS
     Route: 058
     Dates: start: 20090119
  2. CORTISONE [Concomitant]
     Indication: DRUG USE FOR UNKNOWN INDICATION
     Dates: start: 20090903

REACTIONS (6)
  - JOINT SWELLING [None]
  - OEDEMA PERIPHERAL [None]
  - OPEN WOUND [None]
  - RASH [None]
  - RASH MACULAR [None]
  - VOMITING [None]
